FAERS Safety Report 23938087 (Version 1)
Quarter: 2024Q2

REPORT INFORMATION
  Report Type: Spontaneous
  Country: FR (occurrence: FR)
  Receive Date: 20240604
  Receipt Date: 20240604
  Transmission Date: 20240716
  Serious: Yes (Other)
  Sender: FDA-Public Use
  Company Number: None

PATIENT
  Age: 26 Year
  Sex: Male
  Weight: 69 kg

DRUGS (3)
  1. AUGMENTIN [Suspect]
     Active Substance: AMOXICILLIN\CLAVULANATE POTASSIUM
     Indication: Pain
     Dosage: 10 DF, 1 G/125 MG ADULTES, POUDRE POUR SUSPENSION BUVABLE EN SACHET-DOSE (RAPPORT AMOXICILLINE/ACIDE
     Route: 065
     Dates: start: 20230615, end: 20230615
  2. KETOPROFEN [Suspect]
     Active Substance: KETOPROFEN
     Indication: Pain
     Dosage: 10 DF
     Route: 065
     Dates: start: 20230615, end: 20230615
  3. ACETAMINOPHEN [Suspect]
     Active Substance: ACETAMINOPHEN
     Indication: Pain
     Dosage: 12 G
     Route: 065
     Dates: start: 20230615, end: 20230615

REACTIONS (2)
  - Vomiting [Recovering/Resolving]
  - Intentional product misuse [Recovered/Resolved]

NARRATIVE: CASE EVENT DATE: 20230615
